FAERS Safety Report 7150365-5 (Version None)
Quarter: 2010Q4

REPORT INFORMATION
  Report Type: 
  Country: None (occurrence: None)
  Receive Date: 20101123
  Receipt Date: 20101118
  Transmission Date: 20110411
  Serious: Yes (Death)
  Sender: FDA-Public Use
  Company Number: 2010US004722

PATIENT
  Age: 70 Year
  Sex: Male

DRUGS (5)
  1. PROGRAF [Suspect]
     Indication: RENAL TRANSPLANT
     Dosage: 3 MG, UID/QD, ORAL
     Route: 048
     Dates: start: 20090628
  2. MYCOPHENOLIC ACID [Concomitant]
  3. VENOFER 9SACCHARATED IRON OXIDE) [Concomitant]
  4. ARANESP [Concomitant]
  5. PREDNISONE [Concomitant]

REACTIONS (1)
  - PNEUMONIA [None]
